FAERS Safety Report 6848210-8 (Version None)
Quarter: 2010Q3

REPORT INFORMATION
  Report Type: 
  Country: None (occurrence: None)
  Receive Date: 20100716
  Receipt Date: 20100709
  Transmission Date: 20110219
  Serious: Yes (Hospitalization, Other)
  Sender: FDA-Public Use
  Company Number: B0665705A

PATIENT
  Age: 8 Year
  Sex: Male

DRUGS (1)
  1. ATRIANCE [Suspect]
     Route: 065
     Dates: start: 20100501

REACTIONS (4)
  - CARDIOTOXICITY [None]
  - EJECTION FRACTION DECREASED [None]
  - LEFT VENTRICULAR FAILURE [None]
  - PULMONARY OEDEMA [None]
